FAERS Safety Report 7592522-X (Version None)
Quarter: 2011Q3

REPORT INFORMATION
  Report Type: 
  Country: None (occurrence: None)
  Receive Date: 20110706
  Receipt Date: 20110623
  Transmission Date: 20111222
  Serious: No
  Sender: FDA-Public Use
  Company Number: JP-ELI_LILLY_AND_COMPANY-JP201106006989

PATIENT
  Age: 25 Year
  Sex: Male

DRUGS (4)
  1. LEXOTAN [Concomitant]
  2. ALPRAZOLAM [Concomitant]
  3. ZYPREXA [Suspect]
     Dosage: 5 MG, QD
     Route: 048
     Dates: end: 20110601
  4. ZYPREXA [Suspect]
     Dosage: 10 MG, QD
     Route: 048
     Dates: start: 20110601

REACTIONS (1)
  - EPISTAXIS [None]
